FAERS Safety Report 7241528-9 (Version None)
Quarter: 2011Q1

REPORT INFORMATION
  Report Type: 
  Country: None (occurrence: None)
  Receive Date: 20110119
  Receipt Date: 20110119
  Transmission Date: 20110831
  Serious: Yes (Life-Threatening)
  Sender: FDA-Public Use
  Company Number: None

PATIENT
  Age: 57 Year
  Sex: Female
  Weight: 48.9885 kg

DRUGS (1)
  1. OXYCONTIN [Suspect]
     Indication: NERVE COMPRESSION
     Dosage: ONE 80MG EVERY EIGHT HOURS PO
     Route: 048
     Dates: start: 20110114, end: 20110115

REACTIONS (10)
  - VOMITING [None]
  - DRUG EFFECT DECREASED [None]
  - MALAISE [None]
  - DYSPEPSIA [None]
  - VISION BLURRED [None]
  - SOMNOLENCE [None]
  - DIZZINESS [None]
  - HEADACHE [None]
  - DIPLOPIA [None]
  - IMPAIRED DRIVING ABILITY [None]
